FAERS Safety Report 13155045 (Version 1)
Quarter: 2017Q1

REPORT INFORMATION
  Report Type: Spontaneous
  Country: MX (occurrence: MX)
  Receive Date: 20170126
  Receipt Date: 20170126
  Transmission Date: 20170428
  Serious: Yes (Other)
  Sender: FDA-Public Use
  Company Number: MX-PFIZER INC-2017036216

PATIENT
  Age: 75 Year
  Sex: Female

DRUGS (5)
  1. COZAAR [Concomitant]
     Active Substance: LOSARTAN POTASSIUM
  2. FERRANINA [Concomitant]
  3. TRITACE [Concomitant]
     Active Substance: RAMIPRIL
  4. INSPRA [Suspect]
     Active Substance: EPLERENONE
  5. EXETIN A [Concomitant]

REACTIONS (6)
  - Blindness [Not Recovered/Not Resolved]
  - Retinal detachment [Not Recovered/Not Resolved]
  - Diabetes mellitus [Not Recovered/Not Resolved]
  - Renal failure [Not Recovered/Not Resolved]
  - Diabetic foot [Not Recovered/Not Resolved]
  - Hypertension [Not Recovered/Not Resolved]
